FAERS Safety Report 24266597 (Version 1)
Quarter: 2024Q3

REPORT INFORMATION
  Report Type: Report from Study
  Country: CN (occurrence: CN)
  Receive Date: 20240830
  Receipt Date: 20240830
  Transmission Date: 20241017
  Serious: Yes (Death, Life-Threatening, Hospitalization, Other)
  Sender: BEIGENE
  Company Number: CN-BEIGENE-BGN-2024-013636

PATIENT

DRUGS (2)
  1. TISLELIZUMAB [Suspect]
     Active Substance: TISLELIZUMAB
     Indication: Cholangiocarcinoma
     Dosage: 200 MILLIGRAM
  2. LENVATINIB [Concomitant]
     Active Substance: LENVATINIB
     Indication: Cholangiocarcinoma
     Dosage: 8 MILLIGRAM, QD

REACTIONS (2)
  - Immune-mediated myocarditis [Fatal]
  - Immune-mediated myasthenia gravis [Unknown]
